FAERS Safety Report 21044788 (Version 1)
Quarter: 2022Q3

REPORT INFORMATION
  Report Type: Report from Study
  Country: FR (occurrence: FR)
  Receive Date: 20220705
  Receipt Date: 20220705
  Transmission Date: 20221027
  Serious: Yes (Hospitalization, Other)
  Sender: FDA-Public Use
  Company Number: FR-TAKEDA-2022TUS044379

PATIENT
  Age: 33 Year
  Sex: Male

DRUGS (35)
  1. TEDUGLUTIDE [Suspect]
     Active Substance: TEDUGLUTIDE
     Indication: Short-bowel syndrome
     Dosage: UNK
     Route: 042
  2. TEDUGLUTIDE [Suspect]
     Active Substance: TEDUGLUTIDE
     Indication: Short-bowel syndrome
     Dosage: UNK
     Route: 042
  3. TEDUGLUTIDE [Suspect]
     Active Substance: TEDUGLUTIDE
     Indication: Short-bowel syndrome
     Dosage: UNK
     Route: 042
  4. TEDUGLUTIDE [Suspect]
     Active Substance: TEDUGLUTIDE
     Indication: Short-bowel syndrome
     Dosage: UNK
     Route: 042
  5. TAUROLIDINE [Concomitant]
     Active Substance: TAUROLIDINE
     Indication: Product used for unknown indication
     Dosage: 1 DOSAGE FORM
     Route: 042
     Dates: start: 201701
  6. MAGNESIUM [Concomitant]
     Active Substance: MAGNESIUM
     Indication: Hypomagnesaemia
     Dosage: UNK UNK, 1/WEEK
     Route: 042
     Dates: start: 201704
  7. GENTAMICIN [Concomitant]
     Active Substance: GENTAMICIN
     Indication: Flatulence
     Dosage: 10 MILLIGRAM, QD
     Route: 048
     Dates: start: 201704
  8. GENTAMICIN [Concomitant]
     Active Substance: GENTAMICIN
     Indication: Device related infection
     Dosage: 3 MILLILITER, QD
     Route: 042
     Dates: start: 20201106, end: 20201123
  9. ESOMEPRAZOLE [Concomitant]
     Active Substance: ESOMEPRAZOLE
     Indication: Product used for unknown indication
     Dosage: 40 MILLIGRAM, QD
     Route: 048
     Dates: start: 2016
  10. SIMPONI [Concomitant]
     Active Substance: GOLIMUMAB
     Indication: Rheumatic disorder
     Dosage: UNK
     Route: 065
     Dates: start: 201502
  11. SIMPONI [Concomitant]
     Active Substance: GOLIMUMAB
     Indication: Juvenile idiopathic arthritis
     Dosage: 50 MILLIGRAM, MONTHLY
     Route: 058
     Dates: start: 2020
  12. METHOTREXATE SODIUM [Concomitant]
     Active Substance: METHOTREXATE SODIUM
     Indication: Rheumatic disorder
     Dosage: UNK
     Route: 065
     Dates: start: 201402, end: 201812
  13. METHOTREXATE SODIUM [Concomitant]
     Active Substance: METHOTREXATE SODIUM
     Indication: Juvenile idiopathic arthritis
     Dosage: 20 MILLIGRAM
     Route: 058
     Dates: start: 202003
  14. .ALPHA.-TOCOPHEROL ACETATE, D- [Concomitant]
     Active Substance: .ALPHA.-TOCOPHEROL ACETATE, D-
     Indication: Vitamin supplementation
     Dosage: 500 MILLIGRAM, QD
     Route: 048
     Dates: start: 20181228, end: 20191028
  15. .ALPHA.-TOCOPHEROL ACETATE, D- [Concomitant]
     Active Substance: .ALPHA.-TOCOPHEROL ACETATE, D-
     Dosage: 500 MILLIGRAM, BID
     Route: 048
     Dates: start: 2019, end: 202009
  16. .ALPHA.-TOCOPHEROL ACETATE, D- [Concomitant]
     Active Substance: .ALPHA.-TOCOPHEROL ACETATE, D-
     Dosage: 500 MILLIGRAM, TID
     Route: 048
     Dates: start: 202009
  17. CHOLECALCIFEROL [Concomitant]
     Active Substance: CHOLECALCIFEROL
     Indication: Vitamin supplementation
     Dosage: UNK UNK, MONTHLY
     Route: 048
     Dates: start: 201910
  18. VITAMIN D3 [Concomitant]
     Active Substance: CHOLECALCIFEROL
     Indication: Vitamin supplementation
     Dosage: 400 MILLIGRAM, BID
     Route: 048
     Dates: start: 202004
  19. TRAMADOL HYDROCHLORIDE [Concomitant]
     Active Substance: TRAMADOL HYDROCHLORIDE
     Indication: Rheumatic disorder
     Dosage: 100 MILLIGRAM, QD
     Route: 048
  20. TRAMADOL HYDROCHLORIDE [Concomitant]
     Active Substance: TRAMADOL HYDROCHLORIDE
     Indication: Juvenile idiopathic arthritis
  21. CALCIUM CARBONATE;CITRIC ACID [Concomitant]
     Indication: Lithiasis
     Dosage: 500 MILLIGRAM, BID
     Route: 048
     Dates: start: 202004
  22. PAROXETINE HYDROCHLORIDE [Concomitant]
     Active Substance: PAROXETINE HYDROCHLORIDE
     Indication: Antidepressant therapy
     Dosage: 20 MILLIGRAM, QD
     Route: 048
     Dates: start: 201503, end: 202104
  23. CIPROFLOXACIN [Concomitant]
     Active Substance: CIPROFLOXACIN
     Indication: Device related infection
     Dosage: 400 MILLIGRAM, BID
     Route: 042
     Dates: start: 20200121, end: 20200130
  24. PHLOROGLUCINOL;SIMETICONE [Concomitant]
     Indication: Short-bowel syndrome
     Dosage: 400 MILLIGRAM
     Route: 048
     Dates: start: 202004
  25. RIFAXIMIN [Concomitant]
     Active Substance: RIFAXIMIN
     Indication: Gastrointestinal disorder
     Dosage: 550 MILLIGRAM
     Route: 048
     Dates: start: 20201029
  26. CEFOTAXIME [Concomitant]
     Active Substance: CEFOTAXIME SODIUM
     Indication: Device related infection
     Dosage: UNK
     Route: 065
     Dates: start: 20201106, end: 20201113
  27. VANCOMYCIN [Concomitant]
     Active Substance: VANCOMYCIN
     Indication: Device related infection
     Dosage: UNK
     Route: 042
     Dates: start: 20201106, end: 20201109
  28. DAPTOMYCIN [Concomitant]
     Active Substance: DAPTOMYCIN
     Indication: Device related infection
     Dosage: 350 MILLIGRAM, QD
     Route: 042
     Dates: start: 20201109, end: 20201207
  29. INNOHEP [Concomitant]
     Active Substance: TINZAPARIN SODIUM
     Indication: Device related infection
     Dosage: 11000 INTERNATIONAL UNIT, QD
     Route: 065
     Dates: start: 202011, end: 202102
  30. PAROXETINE [Concomitant]
     Active Substance: PAROXETINE
     Indication: Antidepressant therapy
     Dosage: 40 MILLIGRAM, QD
     Route: 048
     Dates: start: 202104
  31. PANTOPRAZOLE [Concomitant]
     Active Substance: PANTOPRAZOLE
     Indication: Barrett^s oesophagus
     Dosage: 40 MILLIGRAM, QD
     Route: 048
     Dates: start: 202104
  32. CHOLECALCIFEROL [Concomitant]
     Active Substance: CHOLECALCIFEROL
     Indication: Vitamin supplementation
     Dosage: 90000 INTERNATIONAL UNIT, 1/WEEK
     Route: 048
     Dates: start: 202104
  33. ASCORBIC ACID [Concomitant]
     Active Substance: ASCORBIC ACID
     Indication: Vitamin supplementation
     Dosage: 500 MILLIGRAM, QD
     Route: 048
     Dates: start: 202104
  34. CREON [Concomitant]
     Active Substance: PANCRELIPASE AMYLASE\PANCRELIPASE LIPASE\PANCRELIPASE PROTEASE
     Indication: Short-bowel syndrome
     Dosage: 50000 INTERNATIONAL UNIT, TID
     Route: 048
     Dates: start: 202104
  35. VITAMIN B12 [Concomitant]
     Active Substance: CYANOCOBALAMIN
     Indication: Vitamin supplementation
     Dosage: 1 MILLIGRAM, 1/WEEK
     Route: 048
     Dates: start: 2020

REACTIONS (1)
  - Vascular device infection [Recovered/Resolved]

NARRATIVE: CASE EVENT DATE: 20201102
